FAERS Safety Report 10235349 (Version 1)
Quarter: 2014Q2

REPORT INFORMATION
  Report Type: Spontaneous
  Country: US (occurrence: US)
  Receive Date: 20140613
  Receipt Date: 20140613
  Transmission Date: 20141212
  Serious: No
  Sender: FDA-Public Use
  Company Number: US-PFIZER INC-2014161501

PATIENT
  Age: 51 Year
  Sex: Female
  Weight: 77.1 kg

DRUGS (9)
  1. LYRICA [Suspect]
     Indication: NEURALGIA
     Dosage: 75 MG, 2X/DAY
     Dates: start: 20140520
  2. LYRICA [Suspect]
     Indication: DEPRESSION
  3. AMLODIPINE AND BENAZEPRIL [Concomitant]
     Indication: HYPERTENSION
     Dosage: AMLODIPINE BESILATE 5MG, BENAZEPRIL HYDROCHLORIDE 20MG, UNK
  4. REMERON [Concomitant]
     Indication: DEPRESSION
     Dosage: 15 MG, UNK
  5. LEXAPRO [Concomitant]
     Indication: DEPRESSION
     Dosage: 20 MG, DAILY
  6. ABILIFY [Concomitant]
     Indication: DEPRESSION
     Dosage: 5 MG, DAILY
  7. DEXILANT [Concomitant]
     Indication: GASTROOESOPHAGEAL REFLUX DISEASE
     Dosage: 30 MG, UNK
  8. ZETIA [Concomitant]
     Indication: BLOOD CHOLESTEROL ABNORMAL
     Dosage: 10 MG, UNK
  9. TYLENOL [Concomitant]
     Indication: PAIN
     Dosage: UNK

REACTIONS (5)
  - Swelling [Unknown]
  - Peripheral swelling [Unknown]
  - Weight increased [Unknown]
  - Nerve injury [Unknown]
  - Neuralgia [Unknown]
